FAERS Safety Report 7160642-X (Version None)
Quarter: 2010Q4

REPORT INFORMATION
  Report Type: 
  Country: None (occurrence: None)
  Receive Date: 20101214
  Receipt Date: 20091211
  Transmission Date: 20110411
  Serious: No
  Sender: FDA-Public Use
  Company Number: US-AMGEN-KDL379851

PATIENT

DRUGS (7)
  1. ENBREL [Suspect]
     Indication: PRODUCT USED FOR UNKNOWN INDICATION
     Dosage: 50 MG, 2 TIMES/WK
     Route: 058
  2. ESTROGENS CONJUGATED [Concomitant]
  3. FEXOFENADINE HCL [Concomitant]
  4. HYDROCHLOROTHIAZIDE [Concomitant]
  5. EZETIMIBE/SIMVASTATIN [Concomitant]
  6. CALCIUM WITH VITAMIN D [Concomitant]
  7. ASPIRIN [Concomitant]

REACTIONS (4)
  - BIOPSY [None]
  - IMPAIRED HEALING [None]
  - INJECTION SITE ERYTHEMA [None]
  - SCAB [None]
